FAERS Safety Report 14088856 (Version 1)
Quarter: 2017Q4

REPORT INFORMATION
  Report Type: Spontaneous
  Country: US (occurrence: US)
  Receive Date: 20171013
  Receipt Date: 20171013
  Transmission Date: 20180321
  Serious: Yes (Other)
  Sender: FDA-Public Use
  Company Number: US-PFIZER INC-2017443202

PATIENT
  Age: 6 Year
  Sex: Male

DRUGS (1)
  1. VIAGRA [Suspect]
     Active Substance: SILDENAFIL CITRATE

REACTIONS (4)
  - Skin discolouration [Unknown]
  - Penile swelling [Unknown]
  - Blood pressure abnormal [Unknown]
  - Accidental exposure to product by child [Unknown]
